FAERS Safety Report 12337799 (Version 1)
Quarter: 2016Q2

REPORT INFORMATION
  Report Type: Spontaneous
  Country: FR (occurrence: FR)
  Receive Date: 20160505
  Receipt Date: 20160505
  Transmission Date: 20160815
  Serious: Yes (Death, Other)
  Sender: FDA-Public Use
  Company Number: FR-MDT-ADR-2016-00806

PATIENT

DRUGS (1)
  1. BACLOFEN. [Suspect]
     Active Substance: BACLOFEN
     Route: 037

REACTIONS (2)
  - Hypertension [Fatal]
  - Haemorrhagic stroke [Fatal]
